FAERS Safety Report 11400387 (Version 1)
Quarter: 2015Q3

REPORT INFORMATION
  Report Type: Spontaneous
  Country: US (occurrence: US)
  Receive Date: 20150820
  Receipt Date: 20150820
  Transmission Date: 20151125
  Serious: No
  Sender: FDA-Public Use
  Company Number: US-PFIZER INC-2015264348

PATIENT
  Age: 71 Year
  Sex: Male
  Weight: 112 kg

DRUGS (4)
  1. WARFARIN [Suspect]
     Active Substance: WARFARIN
     Indication: BLOOD DISORDER
     Dosage: 20 MG, WEEKLY
     Route: 048
     Dates: start: 2011
  2. WARFARIN [Suspect]
     Active Substance: WARFARIN
     Indication: PROPHYLAXIS
     Dosage: 21 MG, WEEKLY
     Route: 048
     Dates: start: 2015
  3. LIPITOR [Suspect]
     Active Substance: ATORVASTATIN CALCIUM
     Indication: BLOOD CHOLESTEROL INCREASED
  4. LIPITOR [Suspect]
     Active Substance: ATORVASTATIN CALCIUM
     Indication: CARDIAC DISORDER
     Dosage: 10 MG, DAILY
     Route: 048
     Dates: start: 2003

REACTIONS (2)
  - International normalised ratio decreased [Unknown]
  - Nightmare [Unknown]

NARRATIVE: CASE EVENT DATE: 2014
